FAERS Safety Report 15713683 (Version 1)
Quarter: 2018Q4

REPORT INFORMATION
  Report Type: Spontaneous
  Country: US (occurrence: US)
  Receive Date: 20181212
  Receipt Date: 20181212
  Transmission Date: 20190205
  Serious: Yes (Hospitalization)
  Sender: FDA-Public Use
  Company Number: None

PATIENT
  Age: 61 Year
  Sex: Female

DRUGS (10)
  1. IPRATROP/ALBUTEROL [Concomitant]
  2. POT CHLORIDE [Concomitant]
     Active Substance: POTASSIUM CHLORIDE
  3. CLONIDINE. [Concomitant]
     Active Substance: CLONIDINE
  4. LEVITIRACETAM [Concomitant]
     Active Substance: LEVETIRACETAM
  5. DOFETILIDE. [Suspect]
     Active Substance: DOFETILIDE
     Indication: ATRIAL FIBRILLATION
     Route: 048
     Dates: start: 20180801
  6. SYNTHROID [Concomitant]
     Active Substance: LEVOTHYROXINE SODIUM
  7. FUROSEMIDE. [Concomitant]
     Active Substance: FUROSEMIDE
  8. VENLAFAXINE [Concomitant]
     Active Substance: VENLAFAXINE HYDROCHLORIDE
  9. DILTIAZEM. [Concomitant]
     Active Substance: DILTIAZEM
  10. IRBESARTAN. [Concomitant]
     Active Substance: IRBESARTAN

REACTIONS (1)
  - Cerebrovascular accident [None]

NARRATIVE: CASE EVENT DATE: 20181106
